FAERS Safety Report 4415749-4 (Version None)
Quarter: 2004Q2

REPORT INFORMATION
  Report Type: 
  Country: None (occurrence: None)
  Receive Date: 20040630
  Receipt Date: 20040416
  Transmission Date: 20050107
  Serious: Yes (Life-Threatening, Other)
  Sender: FDA-Public Use
  Company Number: 2004020331

PATIENT
  Age: 36 Year
  Sex: Female
  Weight: 74.8435 kg

DRUGS (2)
  1. ZOLOFT [Suspect]
     Indication: PANIC DISORDER
     Dosage: 50 MG (DAILY), ORAL
     Route: 048
     Dates: start: 20030815
  2. ALPRAZOLAM [Concomitant]

REACTIONS (4)
  - DEPRESSION [None]
  - FEELING ABNORMAL [None]
  - PANIC ATTACK [None]
  - SUICIDE ATTEMPT [None]
